FAERS Safety Report 8112814-5 (Version None)
Quarter: 2012Q1

REPORT INFORMATION
  Report Type: 
  Country: None (occurrence: None)
  Receive Date: 20120203
  Receipt Date: 20120126
  Transmission Date: 20120608
  Serious: Yes (Hospitalization, Other)
  Sender: FDA-Public Use
  Company Number: US-JNJFOC-20120112515

PATIENT
  Sex: Male
  Weight: 127 kg

DRUGS (19)
  1. FLONASE [Concomitant]
     Indication: CHRONIC OBSTRUCTIVE PULMONARY DISEASE
  2. VALSARTAN [Concomitant]
     Indication: CARDIAC FAILURE CONGESTIVE
     Route: 048
  3. VALSARTAN [Concomitant]
     Indication: HYPERTENSION
     Route: 048
  4. MS CONTIN [Concomitant]
  5. FLONASE [Concomitant]
     Indication: ASTHMA
  6. ALBUTEROL [Concomitant]
     Indication: ASTHMA
     Route: 055
  7. LISINOPRIL [Concomitant]
     Indication: CARDIAC FAILURE CONGESTIVE
     Route: 048
  8. HYDROMORPHONE HCL [Concomitant]
     Indication: PAIN
  9. POTASSIUM [Concomitant]
  10. AMLODIPINE [Concomitant]
     Indication: HYPERTENSION
  11. SPIRIVA [Concomitant]
     Indication: CHRONIC OBSTRUCTIVE PULMONARY DISEASE
     Route: 055
  12. DITROPAN [Concomitant]
  13. XARELTO [Suspect]
     Indication: THROMBOSIS PROPHYLAXIS
     Route: 048
  14. AMLODIPINE [Concomitant]
     Indication: CARDIAC FAILURE CONGESTIVE
  15. FLONASE [Concomitant]
     Indication: MULTIPLE ALLERGIES
  16. LISINOPRIL [Concomitant]
     Indication: HYPERTENSION
     Route: 048
  17. FLOVENT [Concomitant]
     Indication: CHRONIC OBSTRUCTIVE PULMONARY DISEASE
  18. FLOVENT [Concomitant]
     Indication: ASTHMA
  19. LASIX [Concomitant]

REACTIONS (3)
  - RENAL FAILURE ACUTE [None]
  - BLOOD TEST ABNORMAL [None]
  - CELLULITIS [None]
